FAERS Safety Report 6345425-2 (Version None)
Quarter: 2009Q3

REPORT INFORMATION
  Report Type: 
  Country: None (occurrence: None)
  Receive Date: 20090909
  Receipt Date: 20090827
  Transmission Date: 20100115
  Serious: Yes (Life-Threatening)
  Sender: FDA-Public Use
  Company Number: GB-ASTRAZENECA-2009SE11571

PATIENT
  Age: 21 Year
  Sex: Male

DRUGS (5)
  1. DIPRIVAN [Suspect]
     Indication: INDUCTION OF ANAESTHESIA
     Dates: start: 20090805
  2. ONDANSETRON [Suspect]
     Indication: PROCEDURAL NAUSEA
     Dates: start: 20090805, end: 20090805
  3. SODIUM LACTATE IN PLASTIC CONTAINER [Concomitant]
  4. FENTANYL [Concomitant]
  5. MORPHINE [Concomitant]

REACTIONS (4)
  - CONVULSION [None]
  - HYPERSENSITIVITY [None]
  - INCOHERENT [None]
  - LOSS OF CONSCIOUSNESS [None]
